FAERS Safety Report 21822836 (Version 1)
Quarter: 2023Q1

REPORT INFORMATION
  Report Type: Report from Study
  Country: CA (occurrence: CA)
  Receive Date: 20230105
  Receipt Date: 20230105
  Transmission Date: 20230418
  Serious: Yes (Other)
  Sender: FDA-Public Use
  Company Number: CA-002147023-PHHY2016CA131749

PATIENT
  Age: 37 Year
  Sex: Female

DRUGS (14)
  1. JADENU [Interacting]
     Active Substance: DEFERASIROX
     Indication: Sickle cell disease
     Dosage: 4 DF, UNK
     Route: 048
     Dates: start: 20140914
  2. JADENU [Interacting]
     Active Substance: DEFERASIROX
     Indication: Anaemia
     Dosage: 1080 MG, QD
     Route: 048
     Dates: start: 20160914
  3. JADENU [Interacting]
     Active Substance: DEFERASIROX
     Dosage: 1440 MG, QD
     Route: 048
     Dates: start: 201611
  4. JADENU [Interacting]
     Active Substance: DEFERASIROX
     Dosage: 1440 MG, QD
     Route: 048
     Dates: start: 201709
  5. JADENU [Interacting]
     Active Substance: DEFERASIROX
     Dosage: 3 DF, UNK
     Route: 048
  6. NAPROXEN [Suspect]
     Active Substance: NAPROXEN
     Indication: Product used for unknown indication
     Dosage: UNK
     Route: 065
  7. HYDREA [Concomitant]
     Active Substance: HYDROXYUREA
     Indication: Product used for unknown indication
     Dosage: UNK
  8. AMITRIPTYLINE [Concomitant]
     Active Substance: AMITRIPTYLINE
     Indication: Product used for unknown indication
     Dosage: UNK
  9. OMEPRAZOLE [Concomitant]
     Active Substance: OMEPRAZOLE
     Indication: Dyspepsia
     Dosage: UNK
  10. IMODIUM [Concomitant]
     Active Substance: LOPERAMIDE HYDROCHLORIDE
     Dosage: UNK
  11. DEXILANT [Concomitant]
     Active Substance: DEXLANSOPRAZOLE
     Dosage: UNK UNK, QD (MORNING)
  12. MAALOX ANTACID [Concomitant]
     Active Substance: ALUMINUM HYDROXIDE\DIMETHICONE\MAGNESIUM HYDROXIDE
     Indication: Dyspepsia
     Dosage: UNK
  13. CELEBREX [Concomitant]
     Active Substance: CELECOXIB
     Dosage: UNK
  14. GAVISCON [Concomitant]
     Active Substance: ALUMINUM HYDROXIDE\MAGNESIUM CARBONATE
     Indication: Dyspepsia
     Dosage: UNK

REACTIONS (12)
  - Haemoglobin decreased [Unknown]
  - Weight decreased [Recovering/Resolving]
  - Faeces soft [Unknown]
  - Decreased appetite [Recovering/Resolving]
  - Serum ferritin increased [Unknown]
  - Drug interaction [Unknown]
  - Abdominal pain upper [Unknown]
  - Abdominal pain [Not Recovered/Not Resolved]
  - Diarrhoea [Unknown]
  - Nausea [Unknown]
  - Dyspepsia [Not Recovered/Not Resolved]
  - Fatigue [Recovering/Resolving]
